FAERS Safety Report 4732817-8 (Version None)
Quarter: 2005Q3

REPORT INFORMATION
  Report Type: 
  Country: None (occurrence: None)
  Receive Date: 20050725
  Receipt Date: 20040617
  Transmission Date: 20060218
  Serious: Yes (Life-Threatening, Other)
  Sender: FDA-Public Use
  Company Number: WAES 0406USA01812

PATIENT
  Age: 51 Year
  Sex: Female
  Weight: 94.8018 kg

DRUGS (6)
  1. VIOXX [Suspect]
     Indication: FOOT FRACTURE
     Dosage: 25 MG/DAILY/PO
     Route: 048
     Dates: start: 20040614, end: 20040615
  2. VIOXX [Suspect]
     Indication: OSTEOARTHRITIS
     Dosage: 25 MG/DAILY/PO
     Route: 048
     Dates: start: 20040614, end: 20040615
  3. ACIPHEX [Concomitant]
  4. DETROL LA [Concomitant]
  5. ESTRACE [Concomitant]
  6. PAXIL [Concomitant]

REACTIONS (1)
  - HYPERSENSITIVITY [None]
